FAERS Safety Report 14923102 (Version 1)
Quarter: 2018Q2

REPORT INFORMATION
  Report Type: Spontaneous
  Country: US (occurrence: US)
  Receive Date: 20180503
  Receipt Date: 20180503
  Transmission Date: 20180711
  Serious: Yes (Hospitalization)
  Sender: FDA-Public Use
  Company Number: None

PATIENT
  Age: 62 Year
  Sex: Male
  Weight: 74.4 kg

DRUGS (1)
  1. REGORAFENIB 120 MG Q21 DAYS [Suspect]
     Active Substance: REGORAFENIB
     Indication: TRANSITIONAL CELL CARCINOMA
     Route: 048
     Dates: start: 20180130, end: 20180327

REACTIONS (5)
  - Vomiting [None]
  - Asthenia [None]
  - Nausea [None]
  - Decreased appetite [None]
  - Pain [None]

NARRATIVE: CASE EVENT DATE: 20180502
